FAERS Safety Report 4300825-7 (Version None)
Quarter: 2004Q1

REPORT INFORMATION
  Report Type: 
  Country: None (occurrence: None)
  Receive Date: 20040220
  Receipt Date: 20040205
  Transmission Date: 20041129
  Serious: Yes (Life-Threatening, Hospitalization)
  Sender: FDA-Public Use
  Company Number: WAES 0402USA00557

PATIENT
  Age: 59 Year
  Sex: Female

DRUGS (3)
  1. ZETIA [Suspect]
     Indication: BLOOD CHOLESTEROL INCREASED
     Route: 048
     Dates: start: 20031022, end: 20031024
  2. PREVACID [Concomitant]
  3. EVISTA [Concomitant]

REACTIONS (2)
  - ANAPHYLACTIC SHOCK [None]
  - DIARRHOEA [None]
